FAERS Safety Report 9960643 (Version 1)
Quarter: 2014Q1

REPORT INFORMATION
  Report Type: Spontaneous
  Country: US (occurrence: None)
  Receive Date: 20140304
  Receipt Date: 20140304
  Transmission Date: 20141002
  Serious: No
  Sender: FDA-Public Use
  Company Number: None

PATIENT
  Age: 13 Year
  Sex: Male
  Weight: 39.2 kg

DRUGS (1)
  1. DEPAKOTE ER [Suspect]
     Indication: EPILEPSY
     Route: 048

REACTIONS (4)
  - Thrombocytopenia [None]
  - No therapeutic response [None]
  - Product substitution issue [None]
  - Therapeutic response unexpected with drug substitution [None]
